FAERS Safety Report 13031202 (Version 1)
Quarter: 2016Q4

REPORT INFORMATION
  Report Type: Spontaneous
  Country: BR (occurrence: BR)
  Receive Date: 20161215
  Receipt Date: 20161215
  Transmission Date: 20170207
  Serious: Yes (Other)
  Sender: FDA-Public Use
  Company Number: BR-GLAXOSMITHKLINE-BR2016GSK183456

PATIENT
  Sex: Male
  Weight: 89 kg

DRUGS (6)
  1. OMEPRAZOLE. [Concomitant]
     Active Substance: OMEPRAZOLE
     Indication: PROPHYLAXIS
     Dosage: 1 TABLET, QD
     Route: 048
  2. SOMALGIN CARDIO [Concomitant]
     Active Substance: ASPIRIN\DIHYDROXYALUMINUM AMINOACETATE ANHYDROUS\MAGNESIUM CARBONATE
     Indication: BLOOD DISORDER
     Dosage: 1 TABLET, QD
     Route: 048
  3. SERETIDE [Suspect]
     Active Substance: FLUTICASONE PROPIONATE\SALMETEROL XINAFOATE
     Indication: BRONCHITIS
     Dosage: UNK UNK, PRN
     Route: 055
  4. MOTILIUM DOMPERIDONE [Concomitant]
     Indication: REFLUX LARYNGITIS
     Dosage: 1 TABLET, QD
     Route: 048
  5. SERETIDE [Suspect]
     Active Substance: FLUTICASONE PROPIONATE\SALMETEROL XINAFOATE
     Indication: REFLUX LARYNGITIS
  6. OLMETEC [Concomitant]
     Active Substance: OLMESARTAN MEDOXOMIL
     Indication: BLOOD PRESSURE MEASUREMENT
     Dosage: 1 TABLET, QD
     Route: 048

REACTIONS (7)
  - Condition aggravated [Unknown]
  - Diabetes mellitus [Not Recovered/Not Resolved]
  - Expired product administered [Unknown]
  - Cardiovascular disorder [Recovering/Resolving]
  - Product use issue [Not Recovered/Not Resolved]
  - Cataract [Unknown]
  - Wheezing [Unknown]
